FAERS Safety Report 20687423 (Version 1)
Quarter: 2022Q2

REPORT INFORMATION
  Report Type: Spontaneous
  Country: CZ (occurrence: CZ)
  Receive Date: 20220408
  Receipt Date: 20220408
  Transmission Date: 20220721
  Serious: Yes (Hospitalization)
  Sender: FDA-Public Use
  Company Number: CZ-SUN PHARMACEUTICAL INDUSTRIES LTD-2022R1-331947

PATIENT
  Age: 21 Year
  Sex: Female

DRUGS (3)
  1. FLUOXETINE [Interacting]
     Active Substance: FLUOXETINE HYDROCHLORIDE
     Indication: Impulsive behaviour
     Dosage: 20 MILLIGRAM,TBL. 2-0-0
     Route: 065
  2. TRAZODONE [Interacting]
     Active Substance: TRAZODONE HYDROCHLORIDE
     Indication: Impulsive behaviour
     Dosage: 300 MILLIGRAM,TBL. 1 TABLET AT NIGHT
     Route: 065
  3. OXAZEPAM [Concomitant]
     Active Substance: OXAZEPAM
     Indication: Impulsive behaviour
     Dosage: 20 MILLIGRAM,TBL. 1 TABLET IN CASE OF PROBLEMS
     Route: 065

REACTIONS (3)
  - Drug interaction [Unknown]
  - Tremor [Recovered/Resolved]
  - Toxicity to various agents [Unknown]
